FAERS Safety Report 7961106-3 (Version None)
Quarter: 2011Q4

REPORT INFORMATION
  Report Type: 
  Country: None (occurrence: None)
  Receive Date: 20111207
  Receipt Date: 20111128
  Transmission Date: 20120403
  Serious: Yes (Other)
  Sender: FDA-Public Use
  Company Number: US-US-EMD SERONO, INC.-7007651

PATIENT
  Sex: Male
  Weight: 108 kg

DRUGS (3)
  1. METHOTREXATE [Concomitant]
  2. REBIF [Suspect]
     Indication: RELAPSING-REMITTING MULTIPLE SCLEROSIS
     Route: 058
     Dates: start: 20030818
  3. PREDNISONE TAB [Concomitant]

REACTIONS (5)
  - INJECTION SITE ERYTHEMA [None]
  - RHEUMATOID ARTHRITIS [None]
  - HYPERTENSION [None]
  - INJECTION SITE PAIN [None]
  - VITAMIN D DEFICIENCY [None]
